FAERS Safety Report 4769034-1 (Version None)
Quarter: 2005Q3

REPORT INFORMATION
  Report Type: 
  Country: None (occurrence: None)
  Receive Date: 20050915
  Receipt Date: 20050906
  Transmission Date: 20060218
  Serious: Yes (Disabling, Other)
  Sender: FDA-Public Use
  Company Number: US-JNJFOC-20050204670

PATIENT
  Sex: Female
  Weight: 61.69 kg

DRUGS (20)
  1. REMICADE [Suspect]
     Route: 042
  2. REMICADE [Suspect]
     Route: 042
  3. REMICADE [Suspect]
     Route: 042
  4. REMICADE [Suspect]
     Route: 042
  5. REMICADE [Suspect]
     Dosage: THIRD INFUSION.
     Route: 042
  6. REMICADE [Suspect]
     Route: 042
  7. REMICADE [Suspect]
     Route: 042
  8. REMICADE [Suspect]
     Indication: CROHN'S DISEASE
     Route: 042
  9. COLAZOL [Suspect]
     Indication: DRUG USE FOR UNKNOWN INDICATION
  10. FLAGYL [Suspect]
     Indication: DRUG USE FOR UNKNOWN INDICATION
  11. 6MP [Suspect]
     Indication: DRUG USE FOR UNKNOWN INDICATION
  12. ASACOL [Concomitant]
  13. ASACOL [Concomitant]
     Dosage: 4 TABLETS
  14. ENTOCORT [Concomitant]
     Dosage: 3 TABLETS
  15. PROTONIX [Concomitant]
  16. CELEXA [Concomitant]
     Indication: DEPRESSION
  17. PEPCID [Concomitant]
  18. METHOTREXATE [Concomitant]
  19. METHOTREXATE [Concomitant]
  20. XIFAXAN [Concomitant]

REACTIONS (17)
  - COUGH [None]
  - CROHN'S DISEASE [None]
  - DIARRHOEA [None]
  - DRUG INEFFECTIVE [None]
  - GASTROOESOPHAGEAL REFLUX DISEASE [None]
  - HAEMORRHAGE [None]
  - HEADACHE [None]
  - INSOMNIA [None]
  - MUSCLE SPASMS [None]
  - NAUSEA [None]
  - OPTIC NEURITIS [None]
  - OPTIC NEUROPATHY [None]
  - ORAL CANDIDIASIS [None]
  - OSTEOPENIA [None]
  - RHINORRHOEA [None]
  - THYROID NEOPLASM [None]
  - VOMITING [None]
